FAERS Safety Report 5034579-6 (Version None)
Quarter: 2006Q2

REPORT INFORMATION
  Report Type: 
  Country: None (occurrence: None)
  Receive Date: 20060626
  Receipt Date: 20050314
  Transmission Date: 20061013
  Serious: Yes (Hospitalization)
  Sender: FDA-Public Use
  Company Number: FR-BOEHRINGER INGELHEIM PHARMACEUTICALS, INC.-2005-BP-04226YA

PATIENT
  Age: 81 Year
  Sex: Male

DRUGS (6)
  1. OMIX (TAMSULOSIN HYDROCHLORIDE) [Suspect]
     Route: 048
     Dates: start: 20040923, end: 20041022
  2. CELEBREX [Suspect]
     Indication: PAIN
     Route: 048
     Dates: start: 20041016, end: 20041022
  3. XATRAL [Suspect]
     Route: 048
     Dates: start: 20041028, end: 20041104
  4. FUROSEMIDE [Concomitant]
     Dosage: A FEW YEARS
  5. ALLOPURINOL [Concomitant]
     Dosage: A FEW YEARS
  6. ENALAPRIL W/HYDROCHLOROTHIAZIDE [Concomitant]
     Dosage: A FEW YEARS
     Dates: end: 20041212

REACTIONS (13)
  - AFFECT LABILITY [None]
  - ASPARTATE AMINOTRANSFERASE INCREASED [None]
  - CONFUSIONAL STATE [None]
  - DRUG HYPERSENSITIVITY [None]
  - ECZEMA [None]
  - EOSINOPHIL COUNT INCREASED [None]
  - FACE OEDEMA [None]
  - GAMMA-GLUTAMYLTRANSFERASE INCREASED [None]
  - PHLEBITIS SUPERFICIAL [None]
  - PYREXIA [None]
  - RASH MACULO-PAPULAR [None]
  - STAPHYLOCOCCAL INFECTION [None]
  - WHITE BLOOD CELL COUNT INCREASED [None]
